FAERS Safety Report 12380662 (Version 1)
Quarter: 2016Q2

REPORT INFORMATION
  Report Type: Report from Study
  Country: CN (occurrence: CN)
  Receive Date: 20160518
  Receipt Date: 20160518
  Transmission Date: 20160815
  Serious: Yes (Hospitalization)
  Sender: FDA-Public Use
  Company Number: CN-ROCHE-1656696

PATIENT
  Age: 80 Year
  Sex: Male
  Weight: 56 kg

DRUGS (24)
  1. RANIBIZUMAB [Suspect]
     Active Substance: RANIBIZUMAB
     Dosage: PRN
     Route: 050
     Dates: start: 20140711
  2. RANIBIZUMAB [Suspect]
     Active Substance: RANIBIZUMAB
     Dosage: PRN
     Route: 050
     Dates: start: 20141107
  3. AMLODIPINE BESYLATE. [Concomitant]
     Active Substance: AMLODIPINE BESYLATE
     Route: 065
     Dates: start: 20140809
  4. RANIBIZUMAB [Suspect]
     Active Substance: RANIBIZUMAB
     Dosage: PRN
     Route: 050
     Dates: start: 20131018
  5. RANIBIZUMAB [Suspect]
     Active Substance: RANIBIZUMAB
     Dosage: PRN
     Route: 050
     Dates: start: 20150513
  6. RANIBIZUMAB [Suspect]
     Active Substance: RANIBIZUMAB
     Dosage: PRN
     Route: 050
     Dates: start: 20150612
  7. RANIBIZUMAB [Suspect]
     Active Substance: RANIBIZUMAB
     Dosage: PRN
     Route: 050
     Dates: start: 20131213
  8. RANIBIZUMAB [Suspect]
     Active Substance: RANIBIZUMAB
     Dosage: PRN
     Route: 050
     Dates: start: 20140516
  9. RANIBIZUMAB [Suspect]
     Active Substance: RANIBIZUMAB
     Dosage: PRN
     Route: 050
     Dates: start: 20140912
  10. RANIBIZUMAB [Suspect]
     Active Substance: RANIBIZUMAB
     Dosage: PRN
     Route: 050
     Dates: start: 20150417
  11. RANIBIZUMAB [Suspect]
     Active Substance: RANIBIZUMAB
     Dosage: PRN
     Route: 050
     Dates: start: 20140117
  12. RANIBIZUMAB [Suspect]
     Active Substance: RANIBIZUMAB
     Dosage: PRN
     Route: 050
     Dates: start: 20140416
  13. RANIBIZUMAB [Suspect]
     Active Substance: RANIBIZUMAB
     Dosage: PRN
     Route: 050
     Dates: start: 20140613
  14. RANIBIZUMAB [Suspect]
     Active Substance: RANIBIZUMAB
     Dosage: PRN
     Route: 050
     Dates: start: 20140815
  15. RANIBIZUMAB [Suspect]
     Active Substance: RANIBIZUMAB
     Dosage: PRN
     Route: 050
     Dates: start: 20131115
  16. RANIBIZUMAB [Suspect]
     Active Substance: RANIBIZUMAB
     Dosage: PRN
     Route: 050
     Dates: start: 20150306
  17. RANIBIZUMAB [Suspect]
     Active Substance: RANIBIZUMAB
     Dosage: PRN
     Route: 050
     Dates: start: 20150710
  18. RANIBIZUMAB [Suspect]
     Active Substance: RANIBIZUMAB
     Dosage: PRN
     Route: 050
     Dates: start: 20140214
  19. RANIBIZUMAB [Suspect]
     Active Substance: RANIBIZUMAB
     Dosage: PRN
     Route: 050
     Dates: start: 20141010
  20. VALSARTAN. [Concomitant]
     Active Substance: VALSARTAN
     Route: 065
     Dates: start: 2010
  21. RANIBIZUMAB [Suspect]
     Active Substance: RANIBIZUMAB
     Indication: AGE-RELATED MACULAR DEGENERATION
     Dosage: PRN
     Route: 050
     Dates: start: 20130918
  22. RANIBIZUMAB [Suspect]
     Active Substance: RANIBIZUMAB
     Dosage: PRN
     Route: 050
     Dates: start: 20140318
  23. RANIBIZUMAB [Suspect]
     Active Substance: RANIBIZUMAB
     Dosage: PRN
     Route: 050
     Dates: start: 20141210
  24. RANIBIZUMAB [Suspect]
     Active Substance: RANIBIZUMAB
     Dosage: PRN
     Route: 050
     Dates: start: 20150109

REACTIONS (1)
  - Cerebral infarction [Recovering/Resolving]

NARRATIVE: CASE EVENT DATE: 20150721
